FAERS Safety Report 4554175-4 (Version None)
Quarter: 2005Q1

REPORT INFORMATION
  Report Type: 
  Country: None (occurrence: None)
  Receive Date: 20050118
  Receipt Date: 20050107
  Transmission Date: 20050727
  Serious: Yes (Other)
  Sender: FDA-Public Use
  Company Number: IN-MERCK-0501USA01456

PATIENT
  Sex: Male
  Weight: 1 kg

DRUGS (4)
  1. DECADRON [Suspect]
     Indication: PROPHYLAXIS
  2. AMIKACIN BANYU [Concomitant]
  3. AMPICILLIN [Concomitant]
  4. CEFOTAXIME SODIUM [Concomitant]

REACTIONS (4)
  - PNEUMONIA [None]
  - RESPIRATORY DISTRESS [None]
  - SEPSIS [None]
  - SHOCK [None]
